FAERS Safety Report 7630392-1 (Version None)
Quarter: 2011Q3

REPORT INFORMATION
  Report Type: 
  Country: None (occurrence: None)
  Receive Date: 20110722
  Receipt Date: 20110718
  Transmission Date: 20111222
  Serious: Yes (Hospitalization)
  Sender: FDA-Public Use
  Company Number: US-GLAXOSMITHKLINE-A0936921A

PATIENT
  Age: 57 Year
  Sex: Male
  Weight: 107.7 kg

DRUGS (6)
  1. AVANDIA [Suspect]
     Indication: DIABETES MELLITUS
     Dosage: 8MG PER DAY
     Route: 048
     Dates: start: 20060101, end: 20090228
  2. VIAGRA [Concomitant]
  3. PRINIVIL [Concomitant]
  4. ZOCOR [Concomitant]
  5. METFORMIN HCL [Concomitant]
  6. AMARYL [Concomitant]

REACTIONS (5)
  - VENTRICULAR FIBRILLATION [None]
  - ATRIAL FIBRILLATION [None]
  - CORONARY ARTERY DISEASE [None]
  - CARDIAC ARREST [None]
  - MYOCARDIAL INFARCTION [None]
